FAERS Safety Report 15191626 (Version 1)
Quarter: 2018Q3

REPORT INFORMATION
  Report Type: Spontaneous
  Country: JP (occurrence: JP)
  Receive Date: 20180724
  Receipt Date: 20180724
  Transmission Date: 20181010
  Serious: Yes (Death)
  Sender: FDA-Public Use
  Company Number: JP-MALLINCKRODT-T201502210

PATIENT
  Age: 63 Year
  Sex: Male
  Weight: 40 kg

DRUGS (46)
  1. METHADONE [Suspect]
     Active Substance: METHADONE HYDROCHLORIDE
     Dosage: 10 MG (20 MG DAILY DOSE)
     Route: 048
     Dates: start: 20150403, end: 20150409
  2. METHADONE [Suspect]
     Active Substance: METHADONE HYDROCHLORIDE
     Dosage: 5 MG (10 MG DAILY DOSE)
     Route: 048
     Dates: start: 20150413, end: 20150510
  3. MAGMITT [Concomitant]
     Active Substance: MAGNESIUM OXIDE
     Indication: PRODUCT USED FOR UNKNOWN INDICATION
     Dosage: 1980 MG
     Route: 048
     Dates: end: 20150905
  4. ZANTAC [Concomitant]
     Active Substance: RANITIDINE HYDROCHLORIDE
     Dosage: 50 MG
     Route: 051
     Dates: start: 20150525, end: 20150525
  5. DEXART [Concomitant]
     Active Substance: DEXAMETHASONE SODIUM PHOSPHATE
     Dosage: 24 MG
     Route: 051
     Dates: start: 20150525, end: 20150525
  6. DEXART [Concomitant]
     Active Substance: DEXAMETHASONE SODIUM PHOSPHATE
     Dosage: 24 MG
     Route: 051
     Dates: start: 20150724, end: 20150724
  7. PACLITAXEL. [Concomitant]
     Active Substance: PACLITAXEL
     Dosage: 110 MG
     Route: 051
     Dates: start: 20150615, end: 20150615
  8. PACLITAXEL. [Concomitant]
     Active Substance: PACLITAXEL
     Dosage: 110 MG
     Route: 051
     Dates: start: 20150706, end: 20150706
  9. TRYPTANOL [Concomitant]
     Active Substance: AMITRIPTYLINE
     Indication: PRODUCT USED FOR UNKNOWN INDICATION
     Dosage: 10 MG
     Route: 048
     Dates: end: 20150402
  10. TAPENTADOL [Concomitant]
     Active Substance: TAPENTADOL
     Indication: PRODUCT USED FOR UNKNOWN INDICATION
     Dosage: 75 MG
     Route: 048
     Dates: start: 20150410, end: 20150412
  11. ZANTAC [Concomitant]
     Active Substance: RANITIDINE HYDROCHLORIDE
     Dosage: 50 MG
     Route: 051
     Dates: start: 20150625, end: 20150625
  12. ZANTAC [Concomitant]
     Active Substance: RANITIDINE HYDROCHLORIDE
     Dosage: 50 MG
     Route: 051
     Dates: start: 20150706, end: 20150706
  13. METHADONE [Suspect]
     Active Substance: METHADONE HYDROCHLORIDE
     Dosage: 5 MG (15 MG DAILY DOSE)
     Route: 048
     Dates: start: 20150410, end: 20150412
  14. CIPROXAN [Concomitant]
     Active Substance: CIPROFLOXACIN
     Indication: PRODUCT USED FOR UNKNOWN INDICATION
     Dosage: 1200 MG
     Route: 048
     Dates: start: 20150401, end: 20150407
  15. ZANTAC [Concomitant]
     Active Substance: RANITIDINE HYDROCHLORIDE
     Dosage: 50 MG
     Route: 051
     Dates: start: 20150608, end: 20150608
  16. ZANTAC [Concomitant]
     Active Substance: RANITIDINE HYDROCHLORIDE
     Dosage: 50 MG
     Route: 051
     Dates: start: 20150615, end: 20150615
  17. DEXART [Concomitant]
     Active Substance: DEXAMETHASONE SODIUM PHOSPHATE
     Indication: PRODUCT USED FOR UNKNOWN INDICATION
     Dosage: 24 MG
     Route: 051
     Dates: start: 20150511, end: 20150511
  18. DEXART [Concomitant]
     Active Substance: DEXAMETHASONE SODIUM PHOSPHATE
     Dosage: 24 MG
     Route: 051
     Dates: start: 20150518, end: 20150518
  19. DEXART [Concomitant]
     Active Substance: DEXAMETHASONE SODIUM PHOSPHATE
     Dosage: 24 MG
     Route: 051
     Dates: start: 20150608, end: 20150608
  20. PACLITAXEL. [Concomitant]
     Active Substance: PACLITAXEL
     Dosage: 110 MG
     Route: 051
     Dates: start: 20150525, end: 20150525
  21. METHADONE [Suspect]
     Active Substance: METHADONE HYDROCHLORIDE
     Indication: CANCER PAIN
     Dosage: 10 MG (30 MG DAILY DOSE)
     Route: 048
     Dates: start: 20150401, end: 20150402
  22. METHADONE [Suspect]
     Active Substance: METHADONE HYDROCHLORIDE
     Dosage: 10 MG (20 MG DAILY DOSE)
     Route: 048
     Dates: start: 20150608, end: 20150609
  23. LYRICA [Concomitant]
     Active Substance: PREGABALIN
     Indication: PRODUCT USED FOR UNKNOWN INDICATION
     Dosage: 150 MG
     Route: 048
     Dates: end: 20150402
  24. PACLITAXEL. [Concomitant]
     Active Substance: PACLITAXEL
     Dosage: 110 MG
     Route: 051
     Dates: start: 20150724, end: 20150724
  25. LYRICA [Concomitant]
     Active Substance: PREGABALIN
     Dosage: 75 MG
     Route: 048
     Dates: end: 20150905
  26. BROTIZOLAM [Concomitant]
     Active Substance: BROTIZOLAM
     Indication: PRODUCT USED FOR UNKNOWN INDICATION
     Dosage: 0.25 MG
     Route: 048
     Dates: end: 20150423
  27. TAPENTADOL [Concomitant]
     Active Substance: TAPENTADOL
     Dosage: 50 MG
     Route: 048
     Dates: start: 20150413, end: 20150905
  28. DEXART [Concomitant]
     Active Substance: DEXAMETHASONE SODIUM PHOSPHATE
     Dosage: 24 MG
     Route: 051
     Dates: start: 20150622, end: 20150622
  29. PACLITAXEL. [Concomitant]
     Active Substance: PACLITAXEL
     Dosage: 110 MG
     Route: 051
     Dates: start: 20150518, end: 20150518
  30. METHADONE [Suspect]
     Active Substance: METHADONE HYDROCHLORIDE
     Dosage: 5 MG (15 MG DAILY DOSE)
     Route: 048
     Dates: start: 20150610, end: 20150905
  31. CALONAL [Concomitant]
     Active Substance: ACETAMINOPHEN
     Indication: PRODUCT USED FOR UNKNOWN INDICATION
     Dosage: 1600 MG
     Route: 048
     Dates: end: 20150905
  32. ZANTAC [Concomitant]
     Active Substance: RANITIDINE HYDROCHLORIDE
     Indication: PRODUCT USED FOR UNKNOWN INDICATION
     Dosage: 50 MG
     Route: 051
     Dates: start: 20150511, end: 20150511
  33. ZANTAC [Concomitant]
     Active Substance: RANITIDINE HYDROCHLORIDE
     Dosage: 50 MG
     Route: 051
     Dates: start: 20150622, end: 20150622
  34. ZANTAC [Concomitant]
     Active Substance: RANITIDINE HYDROCHLORIDE
     Dosage: 50 MG
     Route: 051
     Dates: start: 20150724, end: 20150724
  35. PACLITAXEL. [Concomitant]
     Active Substance: PACLITAXEL
     Dosage: 110 MG
     Route: 051
     Dates: start: 20150625, end: 20150625
  36. PACLITAXEL. [Concomitant]
     Active Substance: PACLITAXEL
     Dosage: 110 MG
     Route: 051
     Dates: start: 20150622, end: 20150622
  37. LYRICA [Concomitant]
     Active Substance: PREGABALIN
     Dosage: 150 MG
     Route: 048
     Dates: start: 20150406
  38. TAKEPRON [Concomitant]
     Active Substance: LANSOPRAZOLE
     Indication: PRODUCT USED FOR UNKNOWN INDICATION
     Dosage: 15 MG
     Route: 048
     Dates: end: 20150905
  39. DEXART [Concomitant]
     Active Substance: DEXAMETHASONE SODIUM PHOSPHATE
     Dosage: 24 MG
     Route: 051
     Dates: start: 20150615, end: 20150615
  40. DEXART [Concomitant]
     Active Substance: DEXAMETHASONE SODIUM PHOSPHATE
     Dosage: 24 MG
     Route: 051
     Dates: start: 20150706, end: 20150706
  41. PACLITAXEL. [Concomitant]
     Active Substance: PACLITAXEL
     Indication: PRODUCT USED FOR UNKNOWN INDICATION
     Dosage: 110 MG
     Route: 051
     Dates: start: 20150511, end: 20150511
  42. PACLITAXEL. [Concomitant]
     Active Substance: PACLITAXEL
     Dosage: 110 MG
     Route: 051
     Dates: start: 20150608, end: 20150608
  43. MYSLEE [Concomitant]
     Active Substance: ZOLPIDEM TARTRATE
     Indication: PRODUCT USED FOR UNKNOWN INDICATION
     Dosage: 0.5 MG
     Route: 048
     Dates: start: 20150424, end: 20150905
  44. METHADONE [Suspect]
     Active Substance: METHADONE HYDROCHLORIDE
     Dosage: 5 MG (15 MG DAILY DOSE)
     Route: 048
     Dates: start: 20150511, end: 20150607
  45. ZANTAC [Concomitant]
     Active Substance: RANITIDINE HYDROCHLORIDE
     Dosage: 50 MG
     Route: 051
     Dates: start: 20150518, end: 20150518
  46. DEXART [Concomitant]
     Active Substance: DEXAMETHASONE SODIUM PHOSPHATE
     Dosage: 24 MG
     Route: 051
     Dates: start: 20150625, end: 20150625

REACTIONS (5)
  - Myoclonus [Recovering/Resolving]
  - Dyspnoea [Recovering/Resolving]
  - Oesophageal carcinoma [Fatal]
  - Somnolence [Recovered/Resolved]
  - Somnolence [Recovering/Resolving]

NARRATIVE: CASE EVENT DATE: 20150402
